FAERS Safety Report 24724620 (Version 1)
Quarter: 2024Q4

REPORT INFORMATION
  Report Type: Spontaneous
  Country: BR (occurrence: BR)
  Receive Date: 20241212
  Receipt Date: 20241212
  Transmission Date: 20250114
  Serious: Yes (Hospitalization)
  Sender: CELLTRION
  Company Number: BR-CELLTRION INC.-2024BR031168

PATIENT

DRUGS (1)
  1. INFLIXIMAB [Suspect]
     Active Substance: INFLIXIMAB
     Indication: Product used for unknown indication
     Dosage: 300 MG EVERY 8 WEEKS
     Route: 042
     Dates: start: 20240311

REACTIONS (4)
  - Condition aggravated [Recovering/Resolving]
  - Swelling [Unknown]
  - Product label issue [Unknown]
  - Therapy non-responder [Unknown]
